FAERS Safety Report 23150014 (Version 2)
Quarter: 2023Q4

REPORT INFORMATION
  Report Type: Spontaneous
  Country: US (occurrence: US)
  Receive Date: 20231106
  Receipt Date: 20231115
  Transmission Date: 20240109
  Serious: No
  Sender: FDA-Public Use
  Company Number: US-PFIZER INC-202300355857

PATIENT
  Age: 42 Year
  Sex: Male

DRUGS (1)
  1. EUCRISA [Suspect]
     Active Substance: CRISABOROLE
     Dosage: 100 G, DAILY (APPLY TO THE AFFECTED AREAS OF NECK AND R ELBOW DAILY)

REACTIONS (1)
  - Pruritus [Unknown]
